FAERS Safety Report 6896557-1 (Version None)
Quarter: 2010Q3

REPORT INFORMATION
  Report Type: 
  Country: None (occurrence: None)
  Receive Date: 20100802
  Receipt Date: 20090317
  Transmission Date: 20110219
  Serious: No
  Sender: FDA-Public Use
  Company Number: US-PFIZER INC-2009184861

PATIENT
  Sex: Female
  Weight: 77 kg

DRUGS (7)
  1. AMLODIPINE BESYLATE [Suspect]
     Indication: BLOOD PRESSURE ABNORMAL
     Dosage: 5 MG, 1X/DAY
     Dates: start: 20090101, end: 20090201
  2. LOPRESSOR [Concomitant]
     Indication: BLOOD PRESSURE ABNORMAL
     Dosage: 25 MG, 2X/DAY
  3. LIPITOR [Concomitant]
     Dosage: 20MG/DAILY
  4. ACETYLSALICYLIC ACID [Concomitant]
     Dosage: 375MG/DAILY
  5. CO-Q-10 [Concomitant]
     Dosage: 30 MG, 2X/DAY
  6. SOMA [Concomitant]
     Indication: PARKINSON'S DISEASE
     Dosage: 350MG/DAILY
  7. LORTAB [Concomitant]
     Dosage: 5 MG, AS NEEDED

REACTIONS (1)
  - FEELING COLD [None]
